FAERS Safety Report 13859066 (Version 1)
Quarter: 2017Q3

REPORT INFORMATION
  Report Type: Spontaneous
  Country: GB (occurrence: GB)
  Receive Date: 20170811
  Receipt Date: 20170811
  Transmission Date: 20171127
  Serious: Yes (Other)
  Sender: FDA-Public Use
  Company Number: GB-ACCORD-056812

PATIENT
  Age: 67 Year
  Sex: Female

DRUGS (4)
  1. HUMIRA [Suspect]
     Active Substance: ADALIMUMAB
     Indication: OSTEOPOROSIS
  2. METHOTREXATE. [Suspect]
     Active Substance: METHOTREXATE
     Indication: PRODUCT USED FOR UNKNOWN INDICATION
  3. HUMIRA [Suspect]
     Active Substance: ADALIMUMAB
     Indication: RHEUMATOID ARTHRITIS
     Dosage: ALSO RECEIVED SC 40 MG ONCE EVERY 2 WEEKS FOR CHRON^S FROM AUG-2016 AND FOR OSTEOPOROSIS
  4. SULFASALAZINE. [Suspect]
     Active Substance: SULFASALAZINE
     Indication: PRODUCT USED FOR UNKNOWN INDICATION

REACTIONS (6)
  - Productive cough [Not Recovered/Not Resolved]
  - Fall [Unknown]
  - Lower respiratory tract infection [Unknown]
  - Immunodeficiency [Unknown]
  - Fracture [Unknown]
  - Eye infection [Unknown]

NARRATIVE: CASE EVENT DATE: 201608
